FAERS Safety Report 24875259 (Version 1)
Quarter: 2025Q1

REPORT INFORMATION
  Report Type: Spontaneous
  Country: FR (occurrence: FR)
  Receive Date: 20250122
  Receipt Date: 20250122
  Transmission Date: 20250408
  Serious: Yes (Other)
  Sender: MYLAN
  Company Number: FR-MYLANLABS-2025M1003731

PATIENT
  Age: 5 Year
  Sex: Female

DRUGS (8)
  1. CARBAMAZEPINE [Suspect]
     Active Substance: CARBAMAZEPINE
     Indication: Hypothalamic hamartoma
     Dosage: 20 MILLIGRAM/KILOGRAM, QD
     Route: 065
  2. CARBAMAZEPINE [Suspect]
     Active Substance: CARBAMAZEPINE
     Indication: Epilepsy
  3. LEVETIRACETAM [Suspect]
     Active Substance: LEVETIRACETAM
     Indication: Hypothalamic hamartoma
     Dosage: 30 MILLIGRAM/KILOGRAM, QD
     Route: 065
  4. LEVETIRACETAM [Suspect]
     Active Substance: LEVETIRACETAM
     Indication: Epilepsy
  5. VALPROIC ACID [Suspect]
     Active Substance: VALPROIC ACID
     Indication: Hypothalamic hamartoma
     Dosage: 21 MILLIGRAM/KILOGRAM, QD
     Route: 065
  6. VALPROIC ACID [Suspect]
     Active Substance: VALPROIC ACID
     Indication: Epilepsy
  7. CLOBAZAM [Suspect]
     Active Substance: CLOBAZAM
     Indication: Hypothalamic hamartoma
     Route: 065
  8. CLOBAZAM [Suspect]
     Active Substance: CLOBAZAM
     Indication: Epilepsy

REACTIONS (1)
  - Drug ineffective [Unknown]
